FAERS Safety Report 19824196 (Version 1)
Quarter: 2021Q3

REPORT INFORMATION
  Report Type: Spontaneous
  Country: MX (occurrence: MX)
  Receive Date: 20210913
  Receipt Date: 20210913
  Transmission Date: 20211014
  Serious: Yes (Other)
  Sender: FDA-Public Use
  Company Number: MX-TAKEDA-2021TUS056821

PATIENT
  Age: 40 Year
  Sex: Male

DRUGS (2)
  1. TURAZIVE [Suspect]
     Active Substance: FEBUXOSTAT
     Indication: HYPERURICAEMIA
     Dosage: 80 MILLIGRAM, QD
     Route: 048
     Dates: start: 202108, end: 202108
  2. TURAZIVE [Suspect]
     Active Substance: FEBUXOSTAT
     Indication: GOUTY TOPHUS

REACTIONS (3)
  - Drug ineffective [Recovered/Resolved]
  - Condition aggravated [Recovered/Resolved]
  - Gouty tophus [Recovered/Resolved]

NARRATIVE: CASE EVENT DATE: 202108
